FAERS Safety Report 5217453-1 (Version None)
Quarter: 2007Q1

REPORT INFORMATION
  Report Type: 
  Country: None (occurrence: None)
  Receive Date: 20070124
  Receipt Date: 20060307
  Transmission Date: 20070707
  Serious: No
  Sender: FDA-Public Use
  Company Number: US-GLAXOSMITHKLINE-A0596590A

PATIENT
  Age: 58 Year
  Sex: Female

DRUGS (2)
  1. PAXIL CR [Suspect]
     Indication: DRUG USE FOR UNKNOWN INDICATION
     Route: 048
  2. STOOL SOFTENER [Concomitant]

REACTIONS (2)
  - METABOLIC DISORDER [None]
  - WEIGHT INCREASED [None]
